FAERS Safety Report 18532999 (Version 1)
Quarter: 2020Q4

REPORT INFORMATION
  Report Type: Spontaneous
  Country: US (occurrence: US)
  Receive Date: 20201123
  Receipt Date: 20201123
  Transmission Date: 20210114
  Serious: Yes (Other)
  Sender: FDA-Public Use
  Company Number: US-ASTELLAS-2020US040921

PATIENT
  Sex: Female

DRUGS (3)
  1. MYRBETRIQ [Suspect]
     Active Substance: MIRABEGRON
     Indication: PRODUCT USED FOR UNKNOWN INDICATION
     Dosage: 50 MG, TWICE DAILY (ONE 50MG TABLET IN MORNING AND ONE 50 MG TABLET AT NIGHT)
     Route: 065
  2. MYRBETRIQ [Suspect]
     Active Substance: MIRABEGRON
     Indication: PRODUCT USED FOR UNKNOWN INDICATION
     Dosage: 25 MG, ONCE DAILY (FOR 1 MONTH)
  3. MYRBETRIQ [Suspect]
     Active Substance: MIRABEGRON
     Dosage: 2 DF (100 MG), ONCE DAILY

REACTIONS (3)
  - Overdose [Unknown]
  - Post procedural haemorrhage [Not Recovered/Not Resolved]
  - Polyp [Recovered/Resolved]
